FAERS Safety Report 4425691-0 (Version None)
Quarter: 2004Q3

REPORT INFORMATION
  Report Type: 
  Country: None (occurrence: None)
  Receive Date: 20040810
  Receipt Date: 20040802
  Transmission Date: 20050211
  Serious: Yes (Death, Other)
  Sender: FDA-Public Use
  Company Number: USA-2004-0016090

PATIENT
  Age: 50 Year
  Sex: Male
  Weight: 92.1 kg

DRUGS (7)
  1. MORPHINE SULFATE [Suspect]
  2. DILANTIN [Suspect]
     Indication: CONVULSION
  3. DIAZEPAM [Suspect]
  4. OXAZEPAM [Suspect]
  5. TEMAZEPAM [Suspect]
  6. CAFFEINE (CAFFEINE) [Suspect]
  7. REBETRON (INTERFERON ALFA-2B, RIBAVIRIN) [Concomitant]

REACTIONS (7)
  - ACCIDENT [None]
  - BRONCHOPNEUMONIA [None]
  - CARDIOMEGALY [None]
  - DEEP VEIN THROMBOSIS [None]
  - DRUG TOXICITY [None]
  - PULMONARY EMBOLISM [None]
  - SUICIDAL IDEATION [None]
